FAERS Safety Report 13141492 (Version 2)
Quarter: 2017Q2

REPORT INFORMATION
  Report Type: Report from Study
  Country: AR (occurrence: AR)
  Receive Date: 20170123
  Receipt Date: 20170612
  Transmission Date: 20170830
  Serious: Yes (Death, Other)
  Sender: FDA-Public Use
  Company Number: AR-AMGEN-ARGCT2016107642

PATIENT
  Age: 57 Year
  Sex: Female

DRUGS (6)
  1. DENOSUMAB [Suspect]
     Active Substance: DENOSUMAB
     Indication: NEOPLASM MALIGNANT
     Dosage: 1.7 ML, Q4WK
     Route: 058
     Dates: start: 20131111, end: 20141015
  2. CALCIO BASE DUPOMAR D [Concomitant]
     Dosage: 500MG+400UI, QD
     Route: 048
     Dates: start: 20131111, end: 20160918
  3. IBUPROFEN. [Concomitant]
     Active Substance: IBUPROFEN
     Dosage: 600 MG, AS NECESSARY
     Route: 048
  4. AROMASIN [Concomitant]
     Active Substance: EXEMESTANE
     Dosage: 25 MG, QD
     Route: 048
     Dates: start: 20140901, end: 20150312
  5. IBUPROFEN. [Concomitant]
     Active Substance: IBUPROFEN
     Indication: OSTEONECROSIS OF JAW
     Dosage: 600 MG, QD
     Route: 048
     Dates: start: 201408, end: 201410
  6. FERRANIN COMPLEX [Concomitant]
     Dosage: 0.2MG+0.5MG+500MG, QD
     Route: 048
     Dates: start: 20140915, end: 20160918

REACTIONS (2)
  - Sepsis [Fatal]
  - Osteonecrosis of jaw [Not Recovered/Not Resolved]

NARRATIVE: CASE EVENT DATE: 20141112
